FAERS Safety Report 4397185-2 (Version None)
Quarter: 2004Q3

REPORT INFORMATION
  Report Type: 
  Country: None (occurrence: None)
  Receive Date: 20040708
  Receipt Date: 20040625
  Transmission Date: 20050211
  Serious: Yes (Other)
  Sender: FDA-Public Use
  Company Number: 2004043315

PATIENT
  Age: 80 Year
  Sex: Male

DRUGS (3)
  1. PHENYTOIN SODIUM [Suspect]
     Indication: EPILEPSY
     Dosage: ORAL
     Route: 048
  2. VALPROATE SODIUM [Concomitant]
  3. ANTIPYPERTENSIVES (ANTIHYPERTENSIVES) [Concomitant]

REACTIONS (2)
  - HAEMATOCRIT DECREASED [None]
  - HAEMOGLOBIN DECREASED [None]
